FAERS Safety Report 6832989-5 (Version None)
Quarter: 2010Q3

REPORT INFORMATION
  Report Type: 
  Country: None (occurrence: None)
  Receive Date: 20100712
  Receipt Date: 20100603
  Transmission Date: 20110219
  Serious: No
  Sender: FDA-Public Use
  Company Number: US-BIOGENIDEC-2010BI018295

PATIENT
  Age: 42 Year
  Sex: Female

DRUGS (5)
  1. AVONEX [Suspect]
     Indication: MULTIPLE SCLEROSIS
     Route: 030
     Dates: start: 20090101
  2. AVONEX [Suspect]
     Route: 030
  3. AVONEX [Suspect]
     Route: 030
  4. AVONEX [Suspect]
     Route: 030
  5. AVONEX [Suspect]
     Route: 030
     Dates: end: 20100503

REACTIONS (3)
  - BLOOD GLUCOSE INCREASED [None]
  - CENTRAL NERVOUS SYSTEM LESION [None]
  - INFLUENZA LIKE ILLNESS [None]
